FAERS Safety Report 8874809 (Version 2)
Quarter: 2014Q2

REPORT INFORMATION
  Report Type: Spontaneous
  Country: US (occurrence: US)
  Receive Date: 20121023
  Receipt Date: 20131024
  Transmission Date: 20141212
  Serious: No
  Sender: FDA-Public Use
  Company Number: US-PFIZER INC-2012259731

PATIENT
  Sex: 0

DRUGS (1)
  1. PREMPRO [Suspect]
     Dosage: 0.3MG/1.5MG FOR ABOUT 1 YEAR

REACTIONS (2)
  - Product quality issue [Unknown]
  - Drug ineffective [Unknown]
